FAERS Safety Report 24735237 (Version 3)
Quarter: 2024Q4

REPORT INFORMATION
  Report Type: Spontaneous
  Country: US (occurrence: US)
  Receive Date: 20241215
  Receipt Date: 20241223
  Transmission Date: 20250115
  Serious: No
  Sender: SANDOZ
  Company Number: US-SANDOZ-SDZ2024US102261

PATIENT
  Age: 69 Year
  Sex: Female

DRUGS (2)
  1. ESTRADIOL [Suspect]
     Active Substance: ESTRADIOL
     Indication: Product used for unknown indication
     Dosage: 0.05MG/24H
     Route: 065
  2. ESTRADIOL [Suspect]
     Active Substance: ESTRADIOL
     Indication: Product used for unknown indication
     Route: 065

REACTIONS (6)
  - Alopecia [Unknown]
  - Onychoclasis [Unknown]
  - Arthralgia [Unknown]
  - Sleep disorder [Unknown]
  - Insomnia [Unknown]
  - Hot flush [Unknown]

NARRATIVE: CASE EVENT DATE: 20241125
